FAERS Safety Report 9676369 (Version 1)
Quarter: 2013Q4

REPORT INFORMATION
  Report Type: Spontaneous
  Country: US (occurrence: None)
  Receive Date: 20131106
  Receipt Date: 20131106
  Transmission Date: 20140711
  Serious: Yes (Other)
  Sender: FDA-Public Use
  Company Number: ACO_39271_2013

PATIENT
  Age: 58 Year
  Sex: Male

DRUGS (8)
  1. AMPYRA [Suspect]
     Indication: MULTIPLE SCLEROSIS
     Route: 048
     Dates: start: 201008, end: 201309
  2. DRONABINOL [Concomitant]
  3. BACLOFEN [Concomitant]
  4. VESICARE (SOLIFENACIN SUCCINATE) [Concomitant]
  5. HUMALOG (INSULIN LISPRO) [Concomitant]
  6. LANTUS (INSULIN GLARGINE) [Concomitant]
  7. TECFIDERA (DIMETHYL FUMARATE) [Concomitant]
  8. ERY-TAB (ERYTHROMYCIN) [Concomitant]

REACTIONS (2)
  - Convulsion [None]
  - Asthenia [None]
